FAERS Safety Report 8439788-1 (Version None)
Quarter: 2012Q2

REPORT INFORMATION
  Report Type: 
  Country: None (occurrence: None)
  Receive Date: 20120615
  Receipt Date: 20120608
  Transmission Date: 20120825
  Serious: Yes (Hospitalization)
  Sender: FDA-Public Use
  Company Number: US-B.I. PHARMACEUTICALS,INC./RIDGEFIELD-2012-BP-11492BP

PATIENT
  Sex: Male
  Weight: 86 kg

DRUGS (8)
  1. LISINOPRIL [Concomitant]
  2. PRADAXA [Suspect]
     Indication: ATRIAL FIBRILLATION
     Dosage: 300 MG
     Route: 048
     Dates: start: 20110601, end: 20120501
  3. HYDROCHLOROTHIAZIDE [Concomitant]
  4. LASIX [Concomitant]
  5. CRESTOR [Concomitant]
  6. SPIRONOLACTONE [Concomitant]
  7. ASPIRIN [Concomitant]
  8. COREG [Concomitant]
     Dosage: 50 MG

REACTIONS (1)
  - UPPER GASTROINTESTINAL HAEMORRHAGE [None]
